FAERS Safety Report 4723839-1 (Version None)
Quarter: 2005Q3

REPORT INFORMATION
  Report Type: 
  Country: None (occurrence: None)
  Receive Date: 20050721
  Receipt Date: 20050706
  Transmission Date: 20060218
  Serious: Yes (Other)
  Sender: FDA-Public Use
  Company Number: 2005-0008485

PATIENT
  Age: 1 Day
  Sex: Male
  Weight: 42.6 kg

DRUGS (2)
  1. TENOFOVIR DISOPROXIL FUMARATE (TENOFOVIR DISOPROXIL FUMARATE) [Suspect]
     Indication: PROPHYLAXIS AGAINST HIV INFECTION
     Dosage: 1 IN 1 ONCE, TRANSPLACENTAL
     Route: 064
     Dates: start: 20050413, end: 20050413
  2. AZT [Suspect]
     Indication: PROPHYLAXIS AGAINST HIV INFECTION
     Dosage: 8.4 MG, 4 IN 1 D, ORAL
     Route: 048
     Dates: start: 20050414, end: 20050609

REACTIONS (3)
  - ASPARTATE AMINOTRANSFERASE INCREASED [None]
  - BLOOD PHOSPHORUS INCREASED [None]
  - DRUG EXPOSURE DURING PREGNANCY [None]
